FAERS Safety Report 19926474 (Version 2)
Quarter: 2021Q4

REPORT INFORMATION
  Report Type: Spontaneous
  Country: US (occurrence: US)
  Receive Date: 20211006
  Receipt Date: 20211014
  Transmission Date: 20220303
  Serious: Yes (Disabling, Other)
  Sender: FDA-Public Use
  Company Number: US-ELI_LILLY_AND_COMPANY-US202109010983

PATIENT
  Age: 67 Year
  Sex: Male

DRUGS (2)
  1. TRULICITY [Suspect]
     Active Substance: DULAGLUTIDE
     Indication: Diabetes mellitus
     Dosage: 1.5 MG, WEEKLY (1/W)
     Route: 065
  2. HUMULIN R [Suspect]
     Active Substance: INSULIN HUMAN
     Indication: Diabetes mellitus
     Dosage: 300 U, DAILY
     Route: 065

REACTIONS (6)
  - Blindness [Unknown]
  - Diabetic retinopathy [Unknown]
  - Spinal fracture [Unknown]
  - Fall [Unknown]
  - Chest pain [Unknown]
  - Gait inability [Unknown]

NARRATIVE: CASE EVENT DATE: 20201101
